FAERS Safety Report 9671926 (Version 2)
Quarter: 2013Q4

REPORT INFORMATION
  Report Type: Spontaneous
  Country: AU (occurrence: AU)
  Receive Date: 20131106
  Receipt Date: 20131113
  Transmission Date: 20140711
  Serious: Yes (Other)
  Sender: FDA-Public Use
  Company Number: AU-SA-2013SA112222

PATIENT
  Age: 46 Year
  Sex: Female

DRUGS (3)
  1. ALEMTUZUMAB [Suspect]
     Indication: MULTIPLE SCLEROSIS
     Dosage: INFUSION
     Route: 065
  2. ESTRADIOL [Concomitant]
     Indication: MENOPAUSE
  3. MEDROXYPROGESTERONE [Concomitant]
     Indication: MENOPAUSE

REACTIONS (5)
  - Basedow^s disease [Recovered/Resolved]
  - Hyperhidrosis [Recovered/Resolved]
  - Dizziness [Recovered/Resolved]
  - Blood thyroid stimulating hormone decreased [Recovered/Resolved]
  - Thyroxine free increased [Recovered/Resolved]
